FAERS Safety Report 5164778-4 (Version None)
Quarter: 2006Q4

REPORT INFORMATION
  Report Type: 
  Country: None (occurrence: None)
  Receive Date: 20061205
  Receipt Date: 20061127
  Transmission Date: 20070319
  Serious: Yes (Death, Other)
  Sender: FDA-Public Use
  Company Number: US-PURDUE-USA_2006_0025826

PATIENT
  Age: 19 Year
  Sex: Male

DRUGS (3)
  1. MORPHINE SULFATE [Suspect]
     Indication: DRUG ABUSER
     Dosage: UNK, SEE TEXT
  2. XANAX [Suspect]
     Indication: DRUG ABUSER
     Dosage: UNK, SEE TEXT
  3. ALCOHOL [Suspect]
     Indication: ALCOHOL USE
     Dosage: UNK, SEE TEXT

REACTIONS (2)
  - DEATH [None]
  - SUBSTANCE ABUSE [None]
